FAERS Safety Report 5729808-7 (Version None)
Quarter: 2008Q2

REPORT INFORMATION
  Report Type: 
  Country: None (occurrence: None)
  Receive Date: 20080501
  Receipt Date: 20080428
  Transmission Date: 20081010
  Serious: Yes (Death)
  Sender: FDA-Public Use
  Company Number: TCI2008A02184

PATIENT
  Age: 59 Year
  Sex: Male

DRUGS (1)
  1. PREVPAC [Suspect]
     Indication: HELICOBACTER INFECTION
     Dosage: 1 CARD (0.5 CARD, 2 IN 1 D)
     Route: 048
     Dates: start: 20080414, end: 20080418

REACTIONS (5)
  - GASTROENTERITIS STAPHYLOCOCCAL [None]
  - MULTI-ORGAN FAILURE [None]
  - NECROSIS [None]
  - RESPIRATORY ARREST [None]
  - SHOCK [None]
